FAERS Safety Report 4691887-6 (Version None)
Quarter: 2005Q2

REPORT INFORMATION
  Report Type: 
  Country: None (occurrence: None)
  Receive Date: 20050614
  Receipt Date: 20050601
  Transmission Date: 20051028
  Serious: Yes (Other)
  Sender: FDA-Public Use
  Company Number: 2005076814

PATIENT
  Age: 74 Year
  Sex: Female
  Weight: 54.4316 kg

DRUGS (8)
  1. ZITHROMAX [Suspect]
     Indication: MYCOBACTERIUM AVIUM COMPLEX INFECTION
     Dosage: 500 MG (500 MG, DAILY INTERVAL EVERY DAY) ORAL
     Route: 048
     Dates: start: 20050322
  2. CIPROFLOXACIN [Suspect]
     Indication: MYCOBACTERIUM AVIUM COMPLEX INFECTION
     Dosage: 500 MG (500 MG BID INTERVAL: EVERY DAY) ORAL
     Route: 048
     Dates: start: 20050325
  3. ETHAMBUTOL (ETHAMBUTOL) [Suspect]
     Indication: MYCOBACTERIUM AVIUM COMPLEX INFECTION
     Dosage: 1200 MG (INTERVAL: EVERY DAY) ORAL
     Route: 048
     Dates: start: 20050328
  4. HYDROCHLOROTHIAZIDE [Concomitant]
  5. NORVASC [Concomitant]
  6. KLOR-CON [Concomitant]
  7. SOTALOL HCL [Concomitant]
  8. WARFARIN [Concomitant]

REACTIONS (2)
  - HYPERTENSION [None]
  - PATHOGEN RESISTANCE [None]
